FAERS Safety Report 13502785 (Version 13)
Quarter: 2017Q4

REPORT INFORMATION
  Report Type: Spontaneous
  Country: US (occurrence: US)
  Receive Date: 20170502
  Receipt Date: 20171013
  Transmission Date: 20180320
  Serious: Yes (Congenital Anomaly, Other)
  Sender: FDA-Public Use
  Company Number: PHEH2017US012695

PATIENT
  Sex: Male

DRUGS (2)
  1. ONDANSETRON [Suspect]
     Active Substance: ONDANSETRON
     Indication: FOETAL EXPOSURE DURING PREGNANCY
     Dosage: MOTHER^S DOSE: 08 MG, PRN
     Route: 064
  2. ZOFRAN [Suspect]
     Active Substance: ONDANSETRON HYDROCHLORIDE
     Indication: FOETAL EXPOSURE DURING PREGNANCY
     Dosage: MOTHER^S DOSE: 08 MG, PRN
     Route: 064

REACTIONS (48)
  - Epispadias [Unknown]
  - Haemangioma [Unknown]
  - Gait disturbance [Unknown]
  - Fracture [Unknown]
  - Otitis media chronic [Unknown]
  - Middle ear disorder [Unknown]
  - Conjunctivitis [Unknown]
  - Eustachian tube dysfunction [Unknown]
  - Peripheral swelling [Unknown]
  - Congenital hearing disorder [Unknown]
  - Foreign body in ear [Unknown]
  - Lymphadenopathy [Unknown]
  - Dysphonia [Unknown]
  - Upper respiratory tract infection [Unknown]
  - Pain in extremity [Unknown]
  - Attention deficit/hyperactivity disorder [Unknown]
  - Decreased appetite [Unknown]
  - Amblyopia [Unknown]
  - Abscess [Unknown]
  - Congenital anomaly [Unknown]
  - Injury [Unknown]
  - Developmental delay [Unknown]
  - Pain [Unknown]
  - Rhinitis allergic [Unknown]
  - Cleft palate [Unknown]
  - Cleft lip [Unknown]
  - Deafness [Unknown]
  - Foetal exposure during pregnancy [Unknown]
  - Poor feeding infant [Unknown]
  - Strabismus [Unknown]
  - Arthralgia [Unknown]
  - Ear infection [Unknown]
  - Oropharyngeal pain [Unknown]
  - Epiphyseal injury [Unknown]
  - Malocclusion [Unknown]
  - Constipation [Unknown]
  - Speech disorder [Unknown]
  - Otitis externa [Unknown]
  - Foot deformity [Unknown]
  - Learning disability [Unknown]
  - Dyspnoea [Unknown]
  - Syndactyly [Unknown]
  - Thrombocytopenia [Unknown]
  - Corneal lesion [Unknown]
  - Pharyngitis streptococcal [Unknown]
  - Nervous system disorder [Unknown]
  - Pharyngeal erythema [Unknown]
  - Limb injury [Unknown]
